FAERS Safety Report 24315119 (Version 1)
Quarter: 2024Q3

REPORT INFORMATION
  Report Type: Spontaneous
  Country: FR (occurrence: FR)
  Receive Date: 20240913
  Receipt Date: 20240913
  Transmission Date: 20241016
  Serious: Yes (Hospitalization)
  Sender: ACCORD
  Company Number: None

PATIENT
  Age: 74 Year
  Sex: Female

DRUGS (10)
  1. FUROSEMIDE [Suspect]
     Active Substance: FUROSEMIDE
     Indication: Hyponatraemia
     Dosage: NR
     Dates: start: 20240129, end: 20240201
  2. FENTANYL [Suspect]
     Active Substance: FENTANYL\FENTANYL CITRATE
     Indication: Pain
     Dates: end: 20240205
  3. HYDROCHLOROTHIAZIDE [Suspect]
     Active Substance: HYDROCHLOROTHIAZIDE
     Indication: Hypertension
     Dosage: NR
     Dates: start: 20240129, end: 20240201
  4. VALSARTAN [Suspect]
     Active Substance: VALSARTAN
     Indication: Hypertension
     Dosage: NR
     Dates: start: 20240129, end: 20240201
  5. OXAZEPAM [Concomitant]
     Active Substance: OXAZEPAM
  6. ASCORBIC ACID, FERROUS SULPHATE [Concomitant]
  7. ELIQUIS [Concomitant]
     Active Substance: APIXABAN
  8. RISPERIDONE [Concomitant]
     Active Substance: RISPERIDONE
  9. MIRTAZAPINE [Concomitant]
     Active Substance: MIRTAZAPINE
  10. FLUOXETINE HYDROCHLORIDE [Concomitant]
     Active Substance: FLUOXETINE HYDROCHLORIDE

REACTIONS (2)
  - Acute kidney injury [Recovered/Resolved]
  - Confusional state [Recovered/Resolved]

NARRATIVE: CASE EVENT DATE: 20240129
